FAERS Safety Report 21590316 (Version 1)
Quarter: 2022Q4

REPORT INFORMATION
  Report Type: Report from Study
  Country: ZA (occurrence: ZA)
  Receive Date: 20221114
  Receipt Date: 20221114
  Transmission Date: 20230113
  Serious: Yes (Death, Hospitalization)
  Sender: FDA-Public Use
  Company Number: ZA-AstraZeneca-2022A100275

PATIENT
  Sex: Male
  Weight: 10 kg

DRUGS (3)
  1. SYNAGIS [Suspect]
     Active Substance: PALIVIZUMAB
     Indication: Premature baby
     Dates: start: 20220101, end: 20220302
  2. SYNAGIS [Suspect]
     Active Substance: PALIVIZUMAB
     Indication: Bronchopulmonary dysplasia
     Dates: start: 20220225, end: 20220510
  3. SYNAGIS [Suspect]
     Active Substance: PALIVIZUMAB
     Indication: Cardiac disorder

REACTIONS (2)
  - Death [Fatal]
  - Oxygen therapy [Unknown]
